FAERS Safety Report 12086607 (Version 1)
Quarter: 2016Q1

REPORT INFORMATION
  Report Type: Spontaneous
  Country: US (occurrence: US)
  Receive Date: 20160217
  Receipt Date: 20160217
  Transmission Date: 20160526
  Serious: No
  Sender: FDA-Public Use
  Company Number: US-ALLERGAN-1503816US

PATIENT
  Age: 58 Year
  Sex: Female

DRUGS (4)
  1. ZYLOPRIM [Concomitant]
     Active Substance: ALLOPURINOL
     Dosage: UNK
  2. ACYCLOVIR. [Concomitant]
     Active Substance: ACYCLOVIR
     Dosage: UNK
  3. RESTASIS [Suspect]
     Active Substance: CYCLOSPORINE
     Indication: PRODUCT USED FOR UNKNOWN INDICATION
     Dosage: 2 GTT, BID
     Route: 047
     Dates: start: 20150226, end: 20150302
  4. TEGRETOL [Concomitant]
     Active Substance: CARBAMAZEPINE
     Dosage: UNK

REACTIONS (2)
  - Eye irritation [Unknown]
  - Eye pruritus [Unknown]
